FAERS Safety Report 10202625 (Version 1)
Quarter: 2014Q2

REPORT INFORMATION
  Report Type: Spontaneous
  Country: US (occurrence: US)
  Receive Date: 20140528
  Receipt Date: 20140528
  Transmission Date: 20141212
  Serious: No
  Sender: FDA-Public Use
  Company Number: US-ASTRAZENECA-2014SE34718

PATIENT
  Age: 7 Year
  Sex: Male
  Weight: 22.7 kg

DRUGS (3)
  1. SYMBICORT [Suspect]
     Indication: ASTHMA
     Dosage: 80/4.5 WITH UNKNOWN FREQUENCY
     Route: 055
  2. SYMBICORT [Suspect]
     Indication: ASTHMA
     Dosage: 160/4.5, 2 PUFFS BID
     Route: 055
  3. OTHER(S)-UNSPECIFIED [Concomitant]
     Indication: ASTHMA
     Dosage: UNKNOWN UNK

REACTIONS (13)
  - Bronchitis [Unknown]
  - Mental disorder [Unknown]
  - Fear [Unknown]
  - Formication [Unknown]
  - Nervousness [Unknown]
  - Insomnia [Unknown]
  - Abnormal dreams [Unknown]
  - Sleep disorder [Unknown]
  - Nightmare [Unknown]
  - Agitation [Unknown]
  - Psychomotor hyperactivity [Unknown]
  - Panic reaction [Unknown]
  - Off label use [Unknown]
